FAERS Safety Report 16653506 (Version 4)
Quarter: 2020Q1

REPORT INFORMATION
  Report Type: Spontaneous
  Country: BR (occurrence: BR)
  Receive Date: 20190731
  Receipt Date: 20200210
  Transmission Date: 20200409
  Serious: Yes (Hospitalization, Other)
  Sender: FDA-Public Use
  Company Number: PHHY2019BR176743

PATIENT
  Sex: Female

DRUGS (3)
  1. MIACALCIC [Suspect]
     Active Substance: CALCITONIN SALMON
     Indication: PRODUCT USED FOR UNKNOWN INDICATION
     Dosage: UNK UNK, QD, INITIATED AFTER THE FRACTURE (2018)
     Route: 045
     Dates: start: 201804, end: 201806
  2. ACLASTA [Suspect]
     Active Substance: ZOLEDRONIC ACID
     Indication: OSTEOPOROSIS
     Dosage: UNK UNK, ONCE/SINGLE
     Route: 042
     Dates: start: 2014
  3. PREDNISONE. [Suspect]
     Active Substance: PREDNISONE
     Indication: SYSTEMIC LUPUS ERYTHEMATOSUS
     Dosage: 15 MG, QD (BETWEEN 10MG OR 15MG)
     Route: 048

REACTIONS (6)
  - Inguinal hernia [Unknown]
  - Osteoporosis [Unknown]
  - Spinal fracture [Recovered/Resolved]
  - Back pain [Unknown]
  - Pain [Unknown]
  - Fall [Unknown]

NARRATIVE: CASE EVENT DATE: 2018
